FAERS Safety Report 5052733-4 (Version None)
Quarter: 2006Q3

REPORT INFORMATION
  Report Type: 
  Country: None (occurrence: None)
  Receive Date: 20060714
  Receipt Date: 20060714
  Transmission Date: 20061208
  Serious: Yes (Hospitalization)
  Sender: FDA-Public Use
  Company Number: None

PATIENT
  Sex: Male
  Weight: 81 kg

DRUGS (3)
  1. CYCLOPHOSPHAMIDE [Suspect]
     Dosage: 1760 MG
     Dates: start: 20060622
  2. CYTARABINE [Suspect]
     Dosage: 10560 MG
     Dates: start: 20060624
  3. G-CSF (FILGRASTIM, AMGEN) [Suspect]
     Dosage: 4800 MG
     Dates: start: 20060704

REACTIONS (4)
  - BACK PAIN [None]
  - BONE PAIN [None]
  - HAEMATOCRIT DECREASED [None]
  - HAEMOGLOBIN DECREASED [None]
